FAERS Safety Report 17070110 (Version 1)
Quarter: 2019Q4

REPORT INFORMATION
  Report Type: Spontaneous
  Country: PT (occurrence: PT)
  Receive Date: 20191125
  Receipt Date: 20191125
  Transmission Date: 20200122
  Serious: Yes (Hospitalization, Other)
  Sender: FDA-Public Use
  Company Number: PT-ACCORD-162360

PATIENT
  Age: 67 Year
  Sex: Female

DRUGS (1)
  1. METHOTREXATE. [Suspect]
     Active Substance: METHOTREXATE
     Indication: RHEUMATOID ARTHRITIS
     Dosage: 7.5 MG PER WEEK, TAKING MTX 7.5 MG DAILY INSTEAD OF WEEKLY

REACTIONS (6)
  - Mouth ulceration [Not Recovered/Not Resolved]
  - Accidental poisoning [Unknown]
  - Encephalopathy [Unknown]
  - Pancytopenia [Recovered/Resolved]
  - Hypersensitivity pneumonitis [Unknown]
  - Hepatocellular injury [Recovered/Resolved]
